FAERS Safety Report 20824005 (Version 1)
Quarter: 2022Q2

REPORT INFORMATION
  Report Type: Spontaneous
  Country: US (occurrence: US)
  Receive Date: 20220513
  Receipt Date: 20220513
  Transmission Date: 20220720
  Serious: Yes (Hospitalization)
  Sender: FDA-Public Use
  Company Number: US-BRISTOL-MYERS SQUIBB COMPANY-2022-033118

PATIENT
  Age: 76 Year
  Sex: Male
  Weight: 95.2 kg

DRUGS (49)
  1. REVLIMID [Suspect]
     Active Substance: LENALIDOMIDE
     Indication: Plasma cell myeloma
     Dosage: 3 DAILY X 21 DAYS, 7DAYS OFF
     Route: 048
     Dates: start: 20210512, end: 202204
  2. CHOLESTYRAMINE [Concomitant]
     Active Substance: CHOLESTYRAMINE
     Indication: Product used for unknown indication
     Dosage: PACKET 60 S MIX 4G M IN 180 ML OF WATER, MILK, FRUIT JUICE, OR A NONCARBONATED BEVERAGE. STIR UNTIL
     Route: 048
  3. ISOSORBIDE MONONITRATE [Concomitant]
     Active Substance: ISOSORBIDE MONONITRATE
     Indication: Product used for unknown indication
     Dosage: TAKE 1 TABLET(30 MG) BY MOUTH EVERY DAY IN THE MORNING
     Route: 048
  4. ISOSORBIDE MONONITRATE [Concomitant]
     Active Substance: ISOSORBIDE MONONITRATE
     Dosage: TAKE 1 TABLET(30 MG) BY MOUTH EVERY DAY IN THE MORNING
     Route: 048
  5. ACETAMINOPHEN\OXYCODONE HYDROCHLORIDE [Concomitant]
     Active Substance: ACETAMINOPHEN\OXYCODONE HYDROCHLORIDE
     Indication: Pain
     Dosage: TAKE 1 TABLET BY, MOUTH EVERY 4 TO 6 HOURS AS NEEDED FOR PAIN
     Route: 048
  6. XGEVA [Concomitant]
     Active Substance: DENOSUMAB
     Indication: Product used for unknown indication
     Dosage: 120MG/0.7 ML
     Route: 065
  7. Vitamin B50 Complex TR Tablets [Concomitant]
     Indication: Product used for unknown indication
     Dosage: TR TABLETS 60^S
     Route: 065
  8. VITAMIN B12 [Concomitant]
     Active Substance: CYANOCOBALAMIN
     Indication: Product used for unknown indication
     Dosage: TABLETS 60^S
     Route: 065
  9. Walgreens saline nasal spray [Concomitant]
     Indication: Product used for unknown indication
     Dosage: 88 ML
     Route: 065
  10. LOPERAMIDE [Concomitant]
     Active Substance: LOPERAMIDE
     Indication: Diarrhoea
     Route: 065
  11. LOPERAMIDE [Concomitant]
     Active Substance: LOPERAMIDE
     Dosage: TAKE 2 CAPSULES BY MOUTH AFTER FIRST LOOSE STOOL, THEN 1 CAPSULE AFTER EACH SUBSEQUENT LOOSE STOOL A
     Route: 048
  12. KYPROLIS [Concomitant]
     Active Substance: CARFILZOMIB
     Indication: Product used for unknown indication
     Route: 065
  13. FUROSEMIDE [Concomitant]
     Active Substance: FUROSEMIDE
     Indication: Oedema peripheral
     Route: 065
  14. FUROSEMIDE [Concomitant]
     Active Substance: FUROSEMIDE
     Dosage: TAKE 1 TABLET BY MOUTH EVERY DAY FOR 3 DAYS FOR LEG EDEMA (MEASURE WEIGHTS DAILY)
     Route: 048
  15. FIBER [Concomitant]
     Active Substance: PSYLLIUM HUSK
     Indication: Product used for unknown indication
     Dosage: 350 GM
     Route: 065
  16. MINERALS\VITAMINS [Concomitant]
     Active Substance: MINERALS\VITAMINS
     Indication: Product used for unknown indication
     Route: 065
  17. Calcium/ Vit D3 [Concomitant]
     Indication: Product used for unknown indication
     Route: 065
  18. ASPIRIN [Concomitant]
     Active Substance: ASPIRIN
     Indication: Product used for unknown indication
     Dosage: LOW DOSE TABLET
     Route: 065
  19. ALIGN [Concomitant]
     Active Substance: BIFIDOBACTERIUM LONGUM SUBSP. INFANTIS
     Indication: Product used for unknown indication
     Route: 065
  20. FAMOTIDINE [Concomitant]
     Active Substance: FAMOTIDINE
     Indication: Product used for unknown indication
     Route: 065
  21. TAMSULOSIN [Concomitant]
     Active Substance: TAMSULOSIN
     Indication: Product used for unknown indication
     Dosage: TAKE 1 CAPSULE BY MOUTH EVERY DAY
     Route: 048
  22. PROCHLORPERAZINE [Concomitant]
     Active Substance: PROCHLORPERAZINE
     Indication: Nausea
     Dosage: TAKE 1 TABLET BY MOUTH EVERY 4 - 6 HOURS AS NEEDED FOR NAUSEA
     Route: 048
  23. PRAVASTATIN [Concomitant]
     Active Substance: PRAVASTATIN
     Indication: Hypercholesterolaemia
     Dosage: DISSOLVE 1 TABLET UNDER THE TONGUE AT FIRST SIGN OF ATTACK, MAY REPEAT EVERY 5 MINUTES FOR UP TO 3 H
     Route: 048
  24. NITROGLYCERIN [Concomitant]
     Active Substance: NITROGLYCERIN
     Indication: Product used for unknown indication
     Dosage: DISSOLVE 1 TABLET UNDER THE TONGUE AT FIRST SIGN OF ATTACK, MAY REPEAT EVERY 5 MINUTES FOR UP TO 3 T
     Route: 048
  25. NEBIVOLOL [Concomitant]
     Active Substance: NEBIVOLOL
     Indication: Product used for unknown indication
     Dosage: TAKE 1 TABLET BY MOUTH EVERY DAY
     Route: 048
  26. METHYLPREDNISOLONE [Concomitant]
     Active Substance: METHYLPREDNISOLONE
     Indication: Product used for unknown indication
     Dosage: DOSPAK 21 S, FOLLOW PACKAGE DIRECTIONS
     Route: 065
  27. LOSARTAN [Concomitant]
     Active Substance: LOSARTAN
     Indication: Product used for unknown indication
     Dosage: TAKE 1 TABLET BY MOUTH EVERY DAY
     Route: 048
  28. LOSARTAN [Concomitant]
     Active Substance: LOSARTAN
     Dosage: TAKE 1 TABLET BY MOUTH EVERY DAY
     Route: 048
  29. LORATADINE [Concomitant]
     Active Substance: LORATADINE
     Indication: Product used for unknown indication
     Dosage: TAKE 1 TABLET BY MOUTH ONCE DAILY
     Route: 048
  30. GLIMEPIRIDE [Concomitant]
     Active Substance: GLIMEPIRIDE
     Indication: Product used for unknown indication
     Dosage: TAKE 1 TABLET BY MOUTH EVERY DAY WITH BREAKFAST OR THE FIRST MAIN MEAL OF THE DAY
     Route: 048
  31. GLIMEPIRIDE [Concomitant]
     Active Substance: GLIMEPIRIDE
     Dosage: TAKE 1 TABLET BY MOUTH EVERY DAY WITH BREAKFAST OR THE FIRST MAIN MEAL OF THE DAY
     Route: 048
  32. FLUAD 65+ QUAD PF [Concomitant]
     Indication: Product used for unknown indication
     Dosage: 2021-22, ADMINISTER 0.5ML IN THE MUSCLE AS DIRECTED TODAY
     Route: 030
  33. DICYCLOMINE [Concomitant]
     Active Substance: DICYCLOMINE HYDROCHLORIDE
     Indication: Muscle spasms
     Dosage: TAKE 1 TABLET BY MOUTH THREE TIMES DAILY
     Route: 048
  34. CYCLOBENZAPRINE [Concomitant]
     Active Substance: CYCLOBENZAPRINE
     Indication: Muscle spasms
     Dosage: TAKE 1TABLET BY MOUTH EVERY 8 HOURS AS NEEDED ?FOR MUSCLE SPASM
     Route: 048
  35. Moderna MDV COVID-19 Vaccine [Concomitant]
     Indication: Product used for unknown indication
     Dosage: 14 DOSE, ADMINISTER 0.5ML IN THE MUSCLE AS DIRECTED TODAY
     Route: 030
  36. BYSTOLIC [Concomitant]
     Active Substance: NEBIVOLOL HYDROCHLORIDE
     Indication: Product used for unknown indication
     Dosage: TAKE 1 TABLET BY MOUTH EVERY DAY
     Route: 048
  37. BRILINTA [Concomitant]
     Active Substance: TICAGRELOR
     Indication: Product used for unknown indication
     Dosage: TAKE 1 TABLET BY MOUTH TWICE DAILY
     Route: 048
  38. BRILINTA [Concomitant]
     Active Substance: TICAGRELOR
     Dosage: TAKE 1 TABLET BY MOUTH TWICE DAILY
     Route: 048
  39. BRILINTA [Concomitant]
     Active Substance: TICAGRELOR
     Dosage: TAKE 1 TABLET BY MOUTH TWICE DAILY
     Route: 048
  40. ATORVASTATIN [Concomitant]
     Active Substance: ATORVASTATIN
     Indication: Product used for unknown indication
     Dosage: TAKE TABLET BY MOUTH EVERY DAY
     Route: 048
  41. ATORVASTATIN [Concomitant]
     Active Substance: ATORVASTATIN
     Dosage: TAKE TABLET BY MOUTH EVERY DAY
     Route: 048
  42. ANTI-DIARRHEAL [Concomitant]
     Active Substance: LOPERAMIDE HYDROCHLORIDE
     Indication: Diarrhoea
     Dosage: CAPLET, TAKE 2 TABLETS BY MOUTH AFTER FIRST LOOSE STOOL, 1 TABLET AFTER EACH. SUBSEQUESNT LOOSE STOO
     Route: 048
  43. AMLODIPINE [Concomitant]
     Active Substance: AMLODIPINE BESYLATE
     Indication: Product used for unknown indication
     Dosage: TAKE TABLET(5 MG) BY MOUTH EVERY DAY
     Route: 048
  44. AMLODIPINE [Concomitant]
     Active Substance: AMLODIPINE BESYLATE
     Dosage: TAKE 1 TABLET BY MOUTH EVERY DAY
     Route: 048
  45. AMLODIPINE [Concomitant]
     Active Substance: AMLODIPINE BESYLATE
     Dosage: TAKE 1 TABLET BY MOUTH EVERY DAY
     Route: 048
  46. ALLOPURINOL [Concomitant]
     Active Substance: ALLOPURINOL
     Indication: Product used for unknown indication
     Dosage: TAKE 1 TABLET BY, MOUTH DAILY
     Route: 048
  47. ALLOPURINOL [Concomitant]
     Active Substance: ALLOPURINOL
     Dosage: TAKE 1 TABLET BY, MOUTH DAILY
     Route: 048
  48. albuterol hfa inh [Concomitant]
     Indication: Product used for unknown indication
     Dosage: INHALE 2 PUFFS BY MOUTH EVERY 12 HOURS
     Route: 055
  49. ACYCLOVIR [Concomitant]
     Active Substance: ACYCLOVIR
     Indication: Product used for unknown indication
     Dosage: TAKE 1 TABLET BY MOUTH TWICE DAILY
     Route: 048

REACTIONS (2)
  - Gallbladder disorder [Unknown]
  - Off label use [Unknown]

NARRATIVE: CASE EVENT DATE: 20220401
